FAERS Safety Report 11528360 (Version 3)
Quarter: 2016Q2

REPORT INFORMATION
  Report Type: Spontaneous
  Country: US (occurrence: US)
  Receive Date: 20150917
  Receipt Date: 20160413
  Transmission Date: 20160815
  Serious: Yes (Hospitalization)
  Sender: FDA-Public Use
  Company Number: 1713747-2015-999315

PATIENT
  Age: 58 Year
  Sex: Female

DRUGS (3)
  1. CASPOFUNGIN [Suspect]
     Active Substance: CASPOFUNGIN
  2. FAMOTIDINE. [Suspect]
     Active Substance: FAMOTIDINE
  3. DELFLEX [Suspect]
     Active Substance: CALCIUM CHLORIDE\DEXTROSE\MAGNESIUM CHLORIDE\SODIUM CHLORIDE\SODIUM LACTATE
     Indication: END STAGE RENAL DISEASE
     Route: 033

REACTIONS (2)
  - Thrombocytopenia [Recovered/Resolved]
  - Fungal peritonitis [Recovered/Resolved]

NARRATIVE: CASE EVENT DATE: 20150829
